FAERS Safety Report 6027407-3 (Version None)
Quarter: 2008Q4

REPORT INFORMATION
  Report Type: 
  Country: None (occurrence: None)
  Receive Date: 20081231
  Receipt Date: 20081231
  Transmission Date: 20090506
  Serious: Yes (Disabling)
  Sender: FDA-Public Use
  Company Number: None

PATIENT
  Age: 29 Year
  Sex: Female
  Weight: 79.3795 kg

DRUGS (1)
  1. PROAIR HFA [Suspect]
     Dosage: INHALER
     Route: 055

REACTIONS (5)
  - ANGER [None]
  - DRUG INEFFECTIVE [None]
  - FEAR [None]
  - PRODUCT QUALITY ISSUE [None]
  - WHEEZING [None]
